FAERS Safety Report 9607381 (Version 2)
Quarter: 2013Q4

REPORT INFORMATION
  Report Type: Spontaneous
  Country: GB (occurrence: GB)
  Receive Date: 20131009
  Receipt Date: 20131009
  Transmission Date: 20140711
  Serious: Yes (Death)
  Sender: FDA-Public Use
  Company Number: GB-MICRO LABS LIMITED-BB2013-GB-00175

PATIENT
  Age: 69 Year
  Sex: Male
  Weight: 77 kg

DRUGS (6)
  1. SIMVASTATIN [Suspect]
     Indication: PRODUCT USED FOR UNKNOWN INDICATION
     Route: 048
     Dates: start: 2011, end: 20130304
  2. DOCETAXEL [Concomitant]
     Indication: PROSTATE CANCER
     Route: 042
     Dates: start: 20130107, end: 20130107
  3. DOCETAXEL [Concomitant]
     Route: 042
     Dates: start: 20130218, end: 20130218
  4. LORATADINE [Concomitant]
     Indication: PRODUCT USED FOR UNKNOWN INDICATION
     Route: 048
     Dates: start: 2009
  5. ZOLADEX [Concomitant]
     Indication: PROSTATE CANCER
     Route: 058
     Dates: start: 20121121
  6. ZOLEDRONIC ACID [Concomitant]
     Indication: PROSTATE CANCER
     Route: 042
     Dates: start: 20130107, end: 20130107

REACTIONS (18)
  - Pyrexia [Fatal]
  - Alanine aminotransferase increased [Unknown]
  - Blood albumin decreased [Unknown]
  - Blood bilirubin increased [Unknown]
  - Blood alkaline phosphatase increased [Unknown]
  - Blood calcium decreased [Unknown]
  - Blood creatinine increased [Unknown]
  - Blood pH decreased [Unknown]
  - Blood potassium increased [Unknown]
  - Blood urea increased [Unknown]
  - C-reactive protein increased [Unknown]
  - Fibrin D dimer increased [Unknown]
  - Haemoglobin decreased [Unknown]
  - Neutrophil count increased [Unknown]
  - PCO2 decreased [Unknown]
  - PO2 increased [Unknown]
  - Protein total decreased [Unknown]
  - White blood cell count increased [Unknown]
